FAERS Safety Report 9249941 (Version 1)
Quarter: 2013Q2

REPORT INFORMATION
  Report Type: Report from Study
  Country: US (occurrence: US)
  Receive Date: 20130424
  Receipt Date: 20130424
  Transmission Date: 20140414
  Serious: Yes (Other)
  Sender: FDA-Public Use
  Company Number: US-ROCHE-1216781

PATIENT
  Age: 82 Year
  Sex: Female
  Weight: 57.66 kg

DRUGS (1)
  1. HERCEPTIN [Suspect]
     Indication: BREAST CANCER METASTATIC
     Route: 042
     Dates: start: 20110115, end: 20130328

REACTIONS (2)
  - Malignant neoplasm progression [Not Recovered/Not Resolved]
  - Ejection fraction decreased [Not Recovered/Not Resolved]
